FAERS Safety Report 10694067 (Version 3)
Quarter: 2015Q2

REPORT INFORMATION
  Report Type: Spontaneous
  Country: SG (occurrence: SG)
  Receive Date: 20150106
  Receipt Date: 20150401
  Transmission Date: 20150821
  Serious: Yes (Hospitalization)
  Sender: FDA-Public Use
  Company Number: SG-B.I. PHARMACEUTICALS,INC./RIDGEFIELD-2015-BI-00466YA

PATIENT
  Age: 86 Year
  Sex: Male

DRUGS (1)
  1. TAMSULOSIN [Suspect]
     Active Substance: TAMSULOSIN
     Indication: PRODUCT USED FOR UNKNOWN INDICATION
     Dosage: FORMULATION: MODIFIED-RELEASE TABLET
     Route: 065

REACTIONS (4)
  - Lip swelling [Unknown]
  - Rash erythematous [Unknown]
  - Pyrexia [Unknown]
  - Urticaria [Unknown]

NARRATIVE: CASE EVENT DATE: 20141114
